FAERS Safety Report 7860117-6 (Version None)
Quarter: 2011Q4

REPORT INFORMATION
  Report Type: 
  Country: None (occurrence: None)
  Receive Date: 20111027
  Receipt Date: 20111018
  Transmission Date: 20120403
  Serious: Yes (Hospitalization)
  Sender: FDA-Public Use
  Company Number: FR-ASTRAZENECA-2011SE00128

PATIENT
  Age: 22 Month
  Sex: Female

DRUGS (1)
  1. EMLA [Suspect]
     Indication: ANAESTHESIA
     Dosage: ONCE
     Route: 061

REACTIONS (2)
  - INTENTIONAL DRUG MISUSE [None]
  - SKIN BURNING SENSATION [None]
